FAERS Safety Report 5729520-4 (Version None)
Quarter: 2008Q2

REPORT INFORMATION
  Report Type: 
  Country: None (occurrence: None)
  Receive Date: 20080506
  Receipt Date: 20080429
  Transmission Date: 20081010
  Serious: Yes (Hospitalization, Congenital Anomaly, Other)
  Sender: FDA-Public Use
  Company Number: GB-ABBOTT-07P-167-0359026-00

PATIENT
  Sex: Female

DRUGS (1)
  1. VALPROIC ACID [Suspect]
     Indication: DRUG EXPOSURE DURING PREGNANCY
     Route: 064

REACTIONS (31)
  - ABNORMAL BEHAVIOUR [None]
  - ACTIVITIES OF DAILY LIVING IMPAIRED [None]
  - ATRIAL SEPTAL DEFECT [None]
  - BLINDNESS CORTICAL [None]
  - CONGENITAL SCOLIOSIS [None]
  - CONGENITAL SPINAL FUSION [None]
  - COORDINATION ABNORMAL [None]
  - DEVELOPMENTAL DELAY [None]
  - DEXTROCARDIA [None]
  - DISTURBANCE IN ATTENTION [None]
  - DYSMORPHISM [None]
  - DYSPHASIA [None]
  - DYSPNOEA [None]
  - ENCEPHALITIS [None]
  - FOETAL ANTICONVULSANT SYNDROME [None]
  - FRUSTRATION [None]
  - GAIT DISTURBANCE [None]
  - HEPATITIS [None]
  - HYPOKINESIA [None]
  - LEARNING DISABILITY [None]
  - LEARNING DISORDER [None]
  - MUSCLE CONTRACTURE [None]
  - OTITIS MEDIA [None]
  - PECTUS EXCAVATUM [None]
  - PNEUMONIA PARAINFLUENZAE VIRAL [None]
  - RIB DEFORMITY [None]
  - SOCIAL PROBLEM [None]
  - SPEECH DISORDER [None]
  - SPINE MALFORMATION [None]
  - TORTICOLLIS [None]
  - TRICUSPID VALVE INCOMPETENCE [None]
